FAERS Safety Report 9698561 (Version 1)
Quarter: 2013Q4

REPORT INFORMATION
  Report Type: Spontaneous
  Country: ES (occurrence: ES)
  Receive Date: 20131120
  Receipt Date: 20131120
  Transmission Date: 20140711
  Serious: Yes (Other)
  Sender: FDA-Public Use
  Company Number: ES-PFIZER INC-2013329524

PATIENT
  Age: 81 Year
  Sex: Female

DRUGS (7)
  1. LYRICA [Suspect]
     Indication: HERPES ZOSTER
     Dosage: 25 MG, 1X/DAY
     Route: 048
     Dates: start: 2013
  2. NERVINEX [Suspect]
     Indication: HERPES ZOSTER
     Dosage: 125 MG, 1X/DAY
     Route: 048
     Dates: start: 20130623, end: 20130630
  3. PANTOPRAZOLE [Concomitant]
     Dosage: 40 MG, 1X/DAY
     Route: 048
  4. BALZAK [Concomitant]
     Indication: HYPERTENSION
     Dosage: UNK
     Route: 048
  5. BONVIVA [Concomitant]
     Indication: OSTEOPOROSIS
     Dosage: 150 MG, MONTHLY
     Route: 048
  6. INALACOR [Concomitant]
     Dosage: UNK
     Route: 055
  7. SEGURIL [Concomitant]
     Indication: HYPERTENSION
     Dosage: 40 MG, 1X/DAY
     Route: 048

REACTIONS (2)
  - Ataxia [Recovering/Resolving]
  - Polyneuropathy [Recovering/Resolving]
